FAERS Safety Report 23084997 (Version 1)
Quarter: 2023Q4

REPORT INFORMATION
  Report Type: Spontaneous
  Country: US (occurrence: None)
  Receive Date: 20231019
  Receipt Date: 20231019
  Transmission Date: 20240110
  Serious: Yes (Hospitalization)
  Sender: FDA-Public Use
  Company Number: None

PATIENT
  Age: 33 Year
  Sex: Male

DRUGS (1)
  1. CYCLOPHOSPHAMIDE [Suspect]
     Active Substance: CYCLOPHOSPHAMIDE
     Dosage: FREQUENCY : ONCE;?
     Route: 042
     Dates: start: 20221126

REACTIONS (6)
  - Haematochezia [None]
  - Diarrhoea [None]
  - Pancytopenia [None]
  - Mental status changes [None]
  - Haematochezia [None]
  - Febrile neutropenia [None]

NARRATIVE: CASE EVENT DATE: 20221201
